FAERS Safety Report 26164062 (Version 1)
Quarter: 2025Q4

REPORT INFORMATION
  Report Type: Spontaneous
  Country: US (occurrence: US)
  Receive Date: 20251216
  Receipt Date: 20251216
  Transmission Date: 20260118
  Serious: Yes (Death, Other)
  Sender: SANOFI AVENTIS
  Company Number: US-SA-2025SA370667

PATIENT
  Age: 85 Year
  Sex: Male

DRUGS (1)
  1. LANTUS [Suspect]
     Active Substance: INSULIN GLARGINE
     Dosage: UNK, BID
     Route: 058
     Dates: start: 20250120

REACTIONS (2)
  - Myocardial infarction [Fatal]
  - Inappropriate schedule of product administration [Unknown]

NARRATIVE: CASE EVENT DATE: 20250120
